FAERS Safety Report 6178433-5 (Version None)
Quarter: 2009Q2

REPORT INFORMATION
  Report Type: 
  Country: None (occurrence: None)
  Receive Date: 20090504
  Receipt Date: 20090422
  Transmission Date: 20091009
  Serious: Yes (Death, Other)
  Sender: FDA-Public Use
  Company Number: US-GENENTECH-282120

PATIENT

DRUGS (1)
  1. ACTIVASE [Suspect]
     Indication: PULMONARY EMBOLISM
     Dosage: 2 MG, UNK
     Route: 042

REACTIONS (3)
  - DEATH [None]
  - INCORRECT DOSE ADMINISTERED [None]
  - MEDICATION ERROR [None]
